FAERS Safety Report 7971901-2 (Version None)
Quarter: 2011Q4

REPORT INFORMATION
  Report Type: 
  Country: None (occurrence: None)
  Receive Date: 20111212
  Receipt Date: 20111129
  Transmission Date: 20120403
  Serious: Yes (Hospitalization, Disabling, Other)
  Sender: FDA-Public Use
  Company Number: PHEH2011US04506

PATIENT
  Sex: Female
  Weight: 69.388 kg

DRUGS (10)
  1. FISH OIL [Concomitant]
     Dosage: 1000 MG, QD
     Route: 048
  2. GLEEVEC [Suspect]
     Indication: CHRONIC MYELOID LEUKAEMIA
     Dosage: 400 MG, QD
     Route: 048
     Dates: start: 20090109
  3. OXYCONTIN [Concomitant]
     Dosage: T OF 12HRS.
     Route: 048
  4. COSOPT [Concomitant]
     Dosage: EYEDROP, BID
     Route: 061
  5. VALIUM [Concomitant]
     Indication: ANXIETY
     Dosage: 2.5 MG, QD
     Route: 048
  6. VICODIN [Concomitant]
     Dosage: PRN
     Route: 048
  7. OMEPRAZOLE [Concomitant]
     Dosage: 20 MG, QD
     Route: 048
  8. ASPIRIN [Concomitant]
     Dosage: 81 MG, QD
     Route: 048
  9. FERROUS SUCCINATE [Concomitant]
     Dosage: 325 MG, QD
  10. SYNTHROID [Concomitant]
     Dosage: 75 MG,DAILY
     Route: 048

REACTIONS (12)
  - PYREXIA [None]
  - UPPER RESPIRATORY TRACT INFECTION [None]
  - CHILLS [None]
  - NAUSEA [None]
  - SPUTUM ABNORMAL [None]
  - SPUTUM DISCOLOURED [None]
  - VOMITING [None]
  - PNEUMONITIS [None]
  - ANAEMIA POSTOPERATIVE [None]
  - COUGH [None]
  - ASTHENIA [None]
  - PNEUMONIA [None]
